FAERS Safety Report 6340254-8 (Version None)
Quarter: 2009Q3

REPORT INFORMATION
  Report Type: 
  Country: None (occurrence: None)
  Receive Date: 20090902
  Receipt Date: 20090819
  Transmission Date: 20100115
  Serious: Yes (Death, Life-Threatening, Disabling)
  Sender: FDA-Public Use
  Company Number: 2009PV000064

PATIENT
  Age: 14 Year
  Sex: Male
  Weight: 46 kg

DRUGS (11)
  1. DEPOCYT [Suspect]
     Indication: METASTASES TO MENINGES
     Dosage: 50 M; X4; INTH
     Route: 037
     Dates: start: 20080523, end: 20080704
  2. IDARUBICIN (IDABURICIN) (19.2 MG) [Suspect]
     Dosage: 30; 1X
     Dates: start: 20080521, end: 20080830
  3. FLUDARABINE PHOSPHATE [Suspect]
     Dosage: 48 MG; QD; PO
     Route: 048
     Dates: start: 20080527, end: 20080530
  4. CYTARABINE [Suspect]
     Dosage: 30 MG; 1X; INTH
     Route: 037
  5. DIAZEPAM [Concomitant]
  6. DEXAMETHASONE [Concomitant]
  7. METOCLOPRAMIDE [Concomitant]
  8. VITAMIN B6 [Concomitant]
  9. ONDANSETRON [Concomitant]
  10. PREDNISOLONE SODIUM SUCCINATE INJ [Concomitant]
  11. METHOTREXATE [Concomitant]

REACTIONS (8)
  - ACUTE MYELOID LEUKAEMIA [None]
  - BLINDNESS [None]
  - CENTRAL NERVOUS SYSTEM LESION [None]
  - COMA [None]
  - DISEASE PROGRESSION [None]
  - ENCEPHALOPATHY [None]
  - NEUROTOXICITY [None]
  - OVERDOSE [None]
